FAERS Safety Report 5038162-8 (Version None)
Quarter: 2006Q2

REPORT INFORMATION
  Report Type: 
  Country: None (occurrence: None)
  Receive Date: 20060622
  Receipt Date: 20060612
  Transmission Date: 20061013
  Serious: Yes (Hospitalization, Other)
  Sender: FDA-Public Use
  Company Number: 2006074542

PATIENT
  Age: 63 Year
  Sex: Male
  Weight: 127.0072 kg

DRUGS (14)
  1. NEURONTIN [Suspect]
     Indication: NEUROPATHY
     Dosage: 2700 MG (3 IN 1 D)
  2. LYRICA [Suspect]
     Indication: NEUROPATHY
     Dosage: 50 MG
     Dates: start: 20060101
  3. LEVAQUIN [Concomitant]
  4. CELEXA [Concomitant]
  5. OXYCODONE (OXYCODONE) [Concomitant]
  6. ATENOLOL [Concomitant]
  7. LASIX [Concomitant]
  8. ASPIRIN [Concomitant]
  9. PLAVIX [Concomitant]
  10. SULAR [Concomitant]
  11. ULTRAM [Concomitant]
  12. ACIPHEX [Concomitant]
  13. ZETIA [Concomitant]
  14. POTASSIUM (POTASSIUM) [Concomitant]

REACTIONS (9)
  - DIARRHOEA [None]
  - DRY MOUTH [None]
  - FAECAL INCONTINENCE [None]
  - FLATULENCE [None]
  - MEMORY IMPAIRMENT [None]
  - PLATELET COUNT DECREASED [None]
  - PNEUMONIA [None]
  - VISION BLURRED [None]
  - WEIGHT INCREASED [None]
